FAERS Safety Report 9356066 (Version 3)
Quarter: 2016Q4

REPORT INFORMATION
  Report Type: Spontaneous
  Country: CH (occurrence: CH)
  Receive Date: 20130619
  Receipt Date: 20161102
  Transmission Date: 20170207
  Serious: Yes (Life-Threatening, Hospitalization, Other)
  Sender: FDA-Public Use
  Company Number: CH-INCYTE CORPORATION-2013IN001253

PATIENT
  Sex: Female

DRUGS (2)
  1. JAKAVI [Suspect]
     Active Substance: RUXOLITINIB
     Dosage: 10 MG, BID
     Route: 048
     Dates: start: 20130424, end: 20130426
  2. JAKAVI [Suspect]
     Active Substance: RUXOLITINIB
     Indication: MYELOFIBROSIS
     Dosage: 20 MG, BID
     Route: 048
     Dates: start: 20130304, end: 20130424

REACTIONS (7)
  - Leukocytosis [Unknown]
  - Withdrawal syndrome [Unknown]
  - Cytopenia [Unknown]
  - Hypotension [Unknown]
  - Thrombocytosis [Unknown]
  - Splenic vein thrombosis [Unknown]
  - Splenic rupture [Unknown]

NARRATIVE: CASE EVENT DATE: 20130411
